FAERS Safety Report 17571866 (Version 2)
Quarter: 2020Q1

REPORT INFORMATION
  Report Type: Spontaneous
  Country: AU (occurrence: AU)
  Receive Date: 20200323
  Receipt Date: 20200330
  Transmission Date: 20200409
  Serious: Yes (Hospitalization, Other)
  Sender: FDA-Public Use
  Company Number: AU-MYLANLABS-2020M1020311

PATIENT
  Sex: Male

DRUGS (18)
  1. CLOZARIL [Suspect]
     Active Substance: CLOZAPINE
     Indication: SCHIZOPHRENIA
     Dosage: 200 MILLIGRAM
     Route: 048
     Dates: start: 20081211
  2. CLOZARIL [Suspect]
     Active Substance: CLOZAPINE
     Indication: SCHIZOPHRENIA
     Dosage: DOSES RANGING BETWEEN 300-400 MG, OD
     Route: 048
     Dates: start: 2009, end: 201903
  3. ZUCLOPENTHIXOL DECANOATE [Suspect]
     Active Substance: ZUCLOPENTHIXOL DECANOATE
     Dosage: 400 MILLIGRAM, FORTNIGHTLY
     Route: 030
     Dates: start: 2019
  4. AMISULPRIDE MYLAN [Suspect]
     Active Substance: AMISULPRIDE
     Indication: PRODUCT USED FOR UNKNOWN INDICATION
     Dosage: 200 MILLIGRAM, BID
  5. AMISULPRIDE MYLAN [Suspect]
     Active Substance: AMISULPRIDE
     Dosage: UNK
  6. NICOTINE. [Concomitant]
     Active Substance: NICOTINE
     Dosage: PRN
  7. VALPROIC ACID MYLAN [Suspect]
     Active Substance: VALPROIC ACID
     Indication: MENTAL DISORDER
     Dosage: UNK
     Dates: start: 2019
  8. OLANZAPINE. [Suspect]
     Active Substance: OLANZAPINE
     Indication: PRODUCT USED FOR UNKNOWN INDICATION
     Dosage: 405 MILLIGRAM, MONTHLY
     Route: 030
     Dates: start: 201911
  9. CLOZARIL [Suspect]
     Active Substance: CLOZAPINE
     Dosage: UNK
     Route: 048
     Dates: start: 20200323
  10. VALPROIC ACID MYLAN [Suspect]
     Active Substance: VALPROIC ACID
     Dosage: UNK
     Dates: end: 202003
  11. FERROUS SULFATE. [Concomitant]
     Active Substance: FERROUS SULFATE
     Dosage: 325 MILLIGRAM, BID
  12. LORAZEPAM. [Concomitant]
     Active Substance: LORAZEPAM
     Dosage: UNK
     Route: 048
  13. OLANZAPINE MYLAN [Suspect]
     Active Substance: OLANZAPINE
     Dosage: 10 MILLIGRAM, MANE
     Route: 048
     Dates: start: 201911
  14. OLANZAPINE MYLAN [Suspect]
     Active Substance: OLANZAPINE
     Dosage: 20 MILLIGRAM, NOCTE
     Route: 048
     Dates: start: 201911
  15. NICOTINE. [Concomitant]
     Active Substance: NICOTINE
     Dosage: 21 MILLIGRAM PATCH
  16. ZUCLOPENTHIXOL DECANOATE [Suspect]
     Active Substance: ZUCLOPENTHIXOL DECANOATE
     Indication: PRODUCT USED FOR UNKNOWN INDICATION
     Dosage: UNK
     Route: 030
  17. RISPERIDONE MYLAN [Suspect]
     Active Substance: RISPERIDONE
     Indication: PRODUCT USED FOR UNKNOWN INDICATION
     Dosage: UNK
     Dates: start: 201911
  18. ANTIHAEMOPHILIC FACTOR VIII LYOPHIZED [Concomitant]
     Dosage: 3000 INTERNATIONAL UNIT, MONTHLY
     Route: 042

REACTIONS (8)
  - Platelet count decreased [Unknown]
  - Schizophrenia [Unknown]
  - Lymphocyte count decreased [Recovered/Resolved]
  - Drug ineffective [Unknown]
  - Intentional product misuse [Unknown]
  - Leukopenia [Recovered/Resolved]
  - Neutropenia [Recovered/Resolved]
  - Antipsychotic drug level increased [Unknown]

NARRATIVE: CASE EVENT DATE: 2019
